FAERS Safety Report 8193923-1 (Version None)
Quarter: 2012Q1

REPORT INFORMATION
  Report Type: 
  Country: None (occurrence: None)
  Receive Date: 20120308
  Receipt Date: 20120228
  Transmission Date: 20120608
  Serious: Yes (Other)
  Sender: FDA-Public Use
  Company Number: US-ELI_LILLY_AND_COMPANY-US201202008329

PATIENT
  Sex: Male

DRUGS (1)
  1. EFFIENT [Suspect]
     Dosage: 10 MG, MAINTENANCE DOSE
     Dates: end: 20120227

REACTIONS (2)
  - SURGERY [None]
  - PROTHROMBIN TIME ABNORMAL [None]
